FAERS Safety Report 7595449-2 (Version None)
Quarter: 2011Q3

REPORT INFORMATION
  Report Type: 
  Country: None (occurrence: None)
  Receive Date: 20110707
  Receipt Date: 20110627
  Transmission Date: 20111222
  Serious: Yes (Hospitalization)
  Sender: FDA-Public Use
  Company Number: FR-ROCHE-786812

PATIENT
  Sex: Male

DRUGS (9)
  1. NEORAL [Suspect]
     Route: 048
     Dates: start: 20110301
  2. NEBIVOLOL HCL [Concomitant]
  3. RAMIPRIL [Concomitant]
  4. CELLCEPT [Suspect]
     Route: 048
     Dates: start: 20110301
  5. ATORVASTATIN CALCIUM [Concomitant]
  6. ARANESP [Concomitant]
  7. NEXIUM [Concomitant]
  8. LEVEMIR [Concomitant]
  9. FERROUS SULFATE TAB [Concomitant]

REACTIONS (2)
  - GRAFT LOSS [None]
  - DIARRHOEA [None]
